FAERS Safety Report 9916246 (Version 2)
Quarter: 2014Q1

REPORT INFORMATION
  Report Type: Spontaneous
  Country: US (occurrence: None)
  Receive Date: 20140219
  Receipt Date: 20140324
  Transmission Date: 20141002
  Serious: Yes (Hospitalization)
  Sender: FDA-Public Use
  Company Number: UTC-042959

PATIENT
  Age: 60 Year
  Sex: Female

DRUGS (3)
  1. REMODULIN [Suspect]
     Indication: PULMONARY ARTERIAL HYPERTENSION
     Dosage: 48.96 UG/KG (0.034 UG/KG . 1 IN 1 MIN), INTRAVENOUS DRIP
     Route: 041
     Dates: start: 20131006
  2. TRACLEER (BOSENTAN) (UNKNOWN) [Concomitant]
  3. ADCIRCA (TADAFINIL) (40 MILLIGRAM, UNKNOWN) [Concomitant]

REACTIONS (3)
  - Fluid retention [None]
  - Pulmonary arterial hypertension [None]
  - Disease complication [None]
